FAERS Safety Report 6521290-5 (Version None)
Quarter: 2009Q4

REPORT INFORMATION
  Report Type: 
  Country: None (occurrence: None)
  Receive Date: 20091224
  Receipt Date: 20091217
  Transmission Date: 20100525
  Serious: Yes (Hospitalization)
  Sender: FDA-Public Use
  Company Number: 2009003895

PATIENT
  Sex: Female
  Weight: 72.35 kg

DRUGS (2)
  1. ERLOTINIB HYDROCHLORIDE [Suspect]
     Indication: GASTRIC CANCER
     Dosage: (25 MG, QD, DAYS 8-21 CYCLE 1, 1-21 ON SUBSEQUENT), ORAL
     Route: 048
     Dates: start: 20090902, end: 20091116
  2. CETUXIMAB (CETUXIMAB) [Suspect]
     Indication: GASTRIC CANCER
     Dosage: (250 MG/M2, 60-120 MIN WEEKLY), INTRAVENOUS
     Route: 042
     Dates: start: 20090902, end: 20091116

REACTIONS (3)
  - HYPOGLYCAEMIA [None]
  - HYPOKALAEMIA [None]
  - HYPOMAGNESAEMIA [None]
